FAERS Safety Report 15576932 (Version 1)
Quarter: 2018Q4

REPORT INFORMATION
  Report Type: Spontaneous
  Country: US (occurrence: US)
  Receive Date: 20181101
  Receipt Date: 20181101
  Transmission Date: 20190205
  Serious: Yes (Hospitalization)
  Sender: FDA-Public Use
  Company Number: US-CELGENEUS-USA-20181008779

PATIENT
  Sex: Female

DRUGS (4)
  1. OTEZLA [Suspect]
     Active Substance: APREMILAST
     Indication: PSORIASIS
     Dosage: 60 MILLIGRAM
     Route: 048
     Dates: start: 20150908
  2. OTEZLA [Suspect]
     Active Substance: APREMILAST
     Indication: HYPOTHALAMO-PITUITARY DISORDER
  3. OTEZLA [Suspect]
     Active Substance: APREMILAST
     Indication: HYPOTHALAMO-PITUITARY DISORDER
  4. OTEZLA [Suspect]
     Active Substance: APREMILAST
     Indication: MALAISE

REACTIONS (7)
  - Hypoacusis [Not Recovered/Not Resolved]
  - Brain injury [Not Recovered/Not Resolved]
  - Dysgraphia [Not Recovered/Not Resolved]
  - Panic attack [Not Recovered/Not Resolved]
  - Affect lability [Not Recovered/Not Resolved]
  - Autoimmune disorder [Not Recovered/Not Resolved]
  - Polyneuropathy [Not Recovered/Not Resolved]
